FAERS Safety Report 7261983-8 (Version None)
Quarter: 2011Q1

REPORT INFORMATION
  Report Type: 
  Country: None (occurrence: None)
  Receive Date: 20110130
  Receipt Date: 20101025
  Transmission Date: 20110831
  Serious: No
  Sender: FDA-Public Use
  Company Number: US-ABBOTT-10P-163-0681315-00

PATIENT
  Sex: Female
  Weight: 122.58 kg

DRUGS (8)
  1. HUMIRA [Suspect]
     Indication: ARTHRITIS
  2. CRESTOR [Concomitant]
     Indication: BLOOD CHOLESTEROL INCREASED
     Route: 048
  3. SYNTHROID [Concomitant]
     Indication: HYPOTHYROIDISM
     Route: 048
  4. WELLBUTRIN [Concomitant]
     Indication: DEPRESSION
     Route: 048
  5. HUMIRA [Suspect]
     Indication: PSORIATIC ARTHROPATHY
  6. TENORMIN [Concomitant]
     Indication: HYPERTENSION
     Route: 048
  7. VOLTAREN [Concomitant]
     Indication: ARTHRITIS
     Route: 048
  8. HUMIRA [Suspect]
     Indication: PSORIASIS
     Route: 058
     Dates: start: 20100901

REACTIONS (2)
  - BACK PAIN [None]
  - PSORIASIS [None]
